FAERS Safety Report 4781389-0 (Version None)
Quarter: 2005Q3

REPORT INFORMATION
  Report Type: 
  Country: None (occurrence: None)
  Receive Date: 20050928
  Receipt Date: 20040202
  Transmission Date: 20060218
  Serious: Yes (Death, Other)
  Sender: FDA-Public Use
  Company Number: PHFR2004GB00834

PATIENT
  Age: 41 Year
  Sex: Male

DRUGS (5)
  1. CLOZARIL [Suspect]
     Indication: SCHIZOPHRENIA
     Dosage: 200MG/DAY
     Route: 048
     Dates: start: 20040112
  2. CHLORPROMAZINE [Suspect]
     Dosage: 300 MG, TID
  3. PROCYCLIDINE HYDROCHLORIDE 2MG TAB [Suspect]
     Dosage: 5 MG, QD
  4. ZOPICLONE [Suspect]
     Dosage: 7.5MG AT NIGHT
  5. CLONAZEPAM [Suspect]
     Dosage: .5 MG, BID

REACTIONS (11)
  - ANTIPSYCHOTIC DRUG LEVEL ABOVE THERAPEUTIC [None]
  - ARRHYTHMIA [None]
  - ARTERITIS [None]
  - CARDIO-RESPIRATORY ARREST [None]
  - CARDITIS [None]
  - DEHYDRATION [None]
  - DIARRHOEA [None]
  - DRUG INTERACTION [None]
  - MYOCARDITIS [None]
  - ORTHOSTATIC HYPOTENSION [None]
  - RENAL IMPAIRMENT [None]
